FAERS Safety Report 23714162 (Version 1)
Quarter: 2024Q2

REPORT INFORMATION
  Report Type: Spontaneous
  Country: US (occurrence: US)
  Receive Date: 20240405
  Receipt Date: 20240405
  Transmission Date: 20240716
  Serious: No
  Sender: FDA-Public Use
  Company Number: US-SA-SAC20240402000008

PATIENT
  Sex: Female

DRUGS (16)
  1. DUPIXENT [Suspect]
     Active Substance: DUPILUMAB
     Indication: Dermatitis atopic
     Dosage: 300 MG, QOW
     Route: 058
  2. BACLOFEN [Concomitant]
     Active Substance: BACLOFEN
  3. BENLYSTA [Concomitant]
     Active Substance: BELIMUMAB
  4. COLESTIPOL [Concomitant]
     Active Substance: COLESTIPOL
  5. CREON [Concomitant]
     Active Substance: PANCRELIPASE AMYLASE\PANCRELIPASE LIPASE\PANCRELIPASE PROTEASE
     Dosage: 36000-11UNIT
  6. DOXYCYCLINE [Concomitant]
     Active Substance: DOXYCYCLINE
  7. GABAPENTIN [Concomitant]
     Active Substance: GABAPENTIN
  8. METFORMIN [Concomitant]
     Active Substance: METFORMIN HYDROCHLORIDE
  9. OXYCODONE [Concomitant]
     Active Substance: OXYCODONE\OXYCODONE HYDROCHLORIDE
  10. PLAQUENIL [Concomitant]
     Active Substance: HYDROXYCHLOROQUINE SULFATE
  11. SEROQUEL [Concomitant]
     Active Substance: QUETIAPINE FUMARATE
  12. SIMVASTATIN [Concomitant]
     Active Substance: SIMVASTATIN
  13. TEGRETOL [Concomitant]
     Active Substance: CARBAMAZEPINE
  14. VESICARE [Concomitant]
     Active Substance: SOLIFENACIN SUCCINATE
  15. XARELTO [Concomitant]
     Active Substance: RIVAROXABAN
  16. ZYRTEC [Concomitant]
     Active Substance: CETIRIZINE HYDROCHLORIDE

REACTIONS (11)
  - Depression [Unknown]
  - Dry skin [Unknown]
  - Skin fissures [Unknown]
  - Sleep disorder due to a general medical condition [Unknown]
  - Gastritis [Unknown]
  - Blister [Unknown]
  - Ocular hyperaemia [Unknown]
  - Skin exfoliation [Unknown]
  - Pruritus [Unknown]
  - Dry eye [Unknown]
  - Eye inflammation [Unknown]
